FAERS Safety Report 7611058-0 (Version None)
Quarter: 2011Q3

REPORT INFORMATION
  Report Type: 
  Country: None (occurrence: None)
  Receive Date: 20110715
  Receipt Date: 20110708
  Transmission Date: 20111222
  Serious: Yes (Other)
  Sender: FDA-Public Use
  Company Number: FR-TEVA-287180ISR

PATIENT
  Sex: Female

DRUGS (3)
  1. ALDACTAZINE [Concomitant]
     Indication: HYPERTENSION
     Dosage: 1 DOSAGE FORMS;
     Route: 048
     Dates: start: 20050101
  2. PRAMIPEXOLE DIHYCHLLORIDE [Concomitant]
     Indication: PARKINSON'S DISEASE
     Dosage: 2.1 MILLIGRAM;
     Route: 048
     Dates: start: 20050901
  3. AZILECT [Suspect]
     Indication: PARKINSON'S DISEASE
     Dosage: 1 MILLIGRAM;
     Route: 048
     Dates: start: 20101021, end: 20110120

REACTIONS (2)
  - ALOPECIA [None]
  - PAIN IN EXTREMITY [None]
